FAERS Safety Report 8127620-5 (Version None)
Quarter: 2012Q1

REPORT INFORMATION
  Report Type: 
  Country: None (occurrence: None)
  Receive Date: 20120210
  Receipt Date: 20120208
  Transmission Date: 20120608
  Serious: Yes (Hospitalization)
  Sender: FDA-Public Use
  Company Number: US-B.I. PHARMACEUTICALS,INC./RIDGEFIELD-2012-BP-02437BP

PATIENT
  Age: 85 Year
  Sex: Male

DRUGS (2)
  1. CARVEDILOL [Concomitant]
     Dosage: 6.25 MG
     Route: 048
  2. PRADAXA [Suspect]
     Dosage: 300 MG
     Route: 048
     Dates: start: 20120111, end: 20120123

REACTIONS (3)
  - ABDOMINAL PAIN [None]
  - MELAENA [None]
  - TACHYCARDIA [None]
